FAERS Safety Report 19911934 (Version 1)
Quarter: 2021Q4

REPORT INFORMATION
  Report Type: Spontaneous
  Country: US (occurrence: US)
  Receive Date: 20211001
  Receipt Date: 20211001
  Transmission Date: 20220303
  Serious: Yes (Death)
  Sender: FDA-Public Use
  Company Number: None

PATIENT
  Age: 89 Year
  Sex: Female
  Weight: 63.05 kg

DRUGS (2)
  1. REMDESIVIR [Suspect]
     Active Substance: REMDESIVIR
     Indication: COVID-19
     Dosage: ?          OTHER ROUTE:IVPB
     Dates: start: 20210906, end: 20210907
  2. REMDESIVIR [Suspect]
     Active Substance: REMDESIVIR

REACTIONS (1)
  - Death [None]

NARRATIVE: CASE EVENT DATE: 20210908
